FAERS Safety Report 10921071 (Version 1)
Quarter: 2015Q1

REPORT INFORMATION
  Report Type: Spontaneous
  Country: ES (occurrence: None)
  Receive Date: 20150312
  Receipt Date: 20150312
  Transmission Date: 20150721
  Serious: Yes (Other)
  Sender: FDA-Public Use
  Company Number: 2272440

PATIENT
  Age: 72 Year
  Sex: Male

DRUGS (6)
  1. CAPECITABINE. [Suspect]
     Active Substance: CAPECITABINE
     Indication: RECTAL ADENOCARCINOMA
  2. BEVACIZUMAB [Suspect]
     Active Substance: BEVACIZUMAB
     Indication: RECTAL ADENOCARCINOMA
  3. IRINOTECAN HYDROCHLORIDE. [Suspect]
     Active Substance: IRINOTECAN HYDROCHLORIDE
     Indication: RECTAL ADENOCARCINOMA
  4. CETUXIMAB [Suspect]
     Active Substance: CETUXIMAB
     Indication: RECTAL ADENOCARCINOMA
  5. RALTITREXED DISODIUM [Suspect]
     Active Substance: RALTITREXED
     Indication: RECTAL ADENOCARCINOMA
     Dosage: CYCLICAL
     Dates: start: 20121211, end: 20130130
  6. OXALIPLATIN. [Suspect]
     Active Substance: OXALIPLATIN
     Indication: RECTAL ADENOCARCINOMA

REACTIONS (12)
  - Decreased appetite [None]
  - Drug effect decreased [None]
  - Asthenia [None]
  - Nausea [None]
  - Diarrhoea [None]
  - Hepatotoxicity [None]
  - Anaemia [None]
  - Myocardial infarction [None]
  - Neoplasm progression [None]
  - Hypertension [None]
  - Metastases to liver [None]
  - Pulmonary mass [None]
